FAERS Safety Report 6199901-6 (Version None)
Quarter: 2009Q2

REPORT INFORMATION
  Report Type: 
  Country: None (occurrence: None)
  Receive Date: 20090522
  Receipt Date: 20090515
  Transmission Date: 20091009
  Serious: Yes (Other)
  Sender: FDA-Public Use
  Company Number: CR-PFIZER INC-2009214629

PATIENT
  Age: 58 Year

DRUGS (13)
  1. NAPROXEN [Suspect]
     Indication: RHEUMATOID ARTHRITIS
     Dosage: UNK
     Dates: start: 20080805, end: 20090323
  2. BLINDED *PLACEBO [Suspect]
     Indication: RHEUMATOID ARTHRITIS
     Dosage: UNK
     Dates: start: 20080805, end: 20090323
  3. BLINDED CELECOXIB [Suspect]
     Indication: RHEUMATOID ARTHRITIS
     Dosage: UNK
     Dates: start: 20080805, end: 20090323
  4. IBUPROFEN [Suspect]
     Indication: RHEUMATOID ARTHRITIS
     Dosage: UNK
     Dates: start: 20080805, end: 20090323
  5. NAPROXEN [Suspect]
     Dosage: UNK
     Dates: start: 20080805, end: 20090323
  6. ESOMEPRAZOLE MAGNESIUM [Concomitant]
     Route: 048
     Dates: start: 20080805, end: 20090323
  7. COLCHICINE [Concomitant]
     Dosage: UNK
     Route: 048
     Dates: start: 20000101
  8. SILDENAFIL CITRATE [Concomitant]
     Indication: ERECTILE DYSFUNCTION
     Dosage: UNK
     Route: 048
     Dates: start: 20080301
  9. METHOTREXATE [Concomitant]
     Route: 048
     Dates: start: 20080307
  10. ACETAMINOPHEN [Concomitant]
     Dosage: UNK
     Route: 048
     Dates: start: 20070101
  11. VERAPAMIL HYDROCHLORIDE [Concomitant]
     Route: 048
     Dates: start: 20090408
  12. ENALAPRIL MALEATE [Concomitant]
     Route: 048
     Dates: start: 20081006
  13. PENICILLAMINE [Concomitant]
     Route: 048
     Dates: start: 20080307, end: 20090320

REACTIONS (1)
  - RENAL IMPAIRMENT [None]
